FAERS Safety Report 4472178-5 (Version None)
Quarter: 2004Q4

REPORT INFORMATION
  Report Type: 
  Country: None (occurrence: None)
  Receive Date: 20041008
  Receipt Date: 20040927
  Transmission Date: 20050328
  Serious: Yes (Death)
  Sender: FDA-Public Use
  Company Number: 200414005BCC

PATIENT
  Age: 76 Year
  Sex: Female
  Weight: 67.1324 kg

DRUGS (8)
  1. ALEVE [Suspect]
     Indication: MYALGIA
     Dosage: SEE IMAGE
     Route: 048
     Dates: start: 20040812
  2. ALEVE [Suspect]
     Indication: MYALGIA
     Dosage: SEE IMAGE
     Route: 048
     Dates: start: 20040813
  3. ASPIRIN [Suspect]
     Indication: PROPHYLAXIS
     Dosage: 325 MG, QD, ORAL
     Route: 048
  4. THYROID TAB [Concomitant]
  5. MINOCYCLINE HCL [Concomitant]
  6. VITAMINS (NOS) [Concomitant]
  7. DESCONGESTANT NOS [Concomitant]
  8. ANTIHISTAMINES (NOS) [Concomitant]

REACTIONS (5)
  - BLOOD PRESSURE SYSTOLIC INCREASED [None]
  - BRAIN DEATH [None]
  - CEREBRAL HAEMORRHAGE [None]
  - FEELING ABNORMAL [None]
  - MYALGIA [None]
